FAERS Safety Report 8216402-1 (Version None)
Quarter: 2012Q1

REPORT INFORMATION
  Report Type: 
  Country: None (occurrence: None)
  Receive Date: 20120316
  Receipt Date: 20120314
  Transmission Date: 20120608
  Serious: Yes (Death)
  Sender: FDA-Public Use
  Company Number: PHHY2012DO022960

PATIENT
  Age: 76 Year
  Sex: Male

DRUGS (1)
  1. EXFORGE [Suspect]
     Dosage: (160/5 MG), UNK

REACTIONS (1)
  - DEATH [None]
